FAERS Safety Report 7519106-3 (Version None)
Quarter: 2011Q2

REPORT INFORMATION
  Report Type: 
  Country: None (occurrence: None)
  Receive Date: 20110602
  Receipt Date: 20110523
  Transmission Date: 20111010
  Serious: Yes (Other)
  Sender: FDA-Public Use
  Company Number: CH-ROCHE-778655

PATIENT
  Age: 62 Year
  Sex: Female

DRUGS (3)
  1. PREDNISONE [Concomitant]
  2. METHOTREXATE SODIUM [Concomitant]
     Dosage: FREQUENCY:WEEK
     Route: 058
  3. ACTEMRA [Suspect]
     Route: 042

REACTIONS (1)
  - BREAST CANCER [None]
